FAERS Safety Report 5699718-2 (Version None)
Quarter: 2008Q2

REPORT INFORMATION
  Report Type: 
  Country: None (occurrence: None)
  Receive Date: 20080410
  Receipt Date: 20080403
  Transmission Date: 20081010
  Serious: Yes (Death, Other)
  Sender: FDA-Public Use
  Company Number: PHEH2007US05653

PATIENT
  Age: 88 Year
  Sex: Male

DRUGS (1)
  1. EXJADE [Suspect]

REACTIONS (5)
  - ASTHENIA [None]
  - DEATH [None]
  - DECREASED APPETITE [None]
  - INSOMNIA [None]
  - VOMITING [None]
